FAERS Safety Report 7918003 (Version 4)
Quarter: 2012Q4

REPORT INFORMATION
  Report Type: 
  Country: US (occurrence: US)
  Receive Date: 20110428
  Receipt Date: 20121026
  Transmission Date: 20130627
  Serious: No
  Sender: FDA-Public Use
  Company Number: US-ASTRAZENECA-2011SE22972

PATIENT
  Age: 82 Year
  Sex: Female

DRUGS (1)
  1. CRESTOR [Suspect]
     Route: 048

REACTIONS (3)
  - Foot fracture [Unknown]
  - Dyspnoea [Unknown]
  - Blood cholesterol increased [Unknown]
